FAERS Safety Report 17093511 (Version 2)
Quarter: 2019Q4

REPORT INFORMATION
  Report Type: Spontaneous
  Country: CH (occurrence: CH)
  Receive Date: 20191129
  Receipt Date: 20191212
  Transmission Date: 20200122
  Serious: Yes (Disabling, Other)
  Sender: FDA-Public Use
  Company Number: NVSC2019CH044623

PATIENT
  Age: 54 Year
  Sex: Female

DRUGS (3)
  1. FEMARA [Suspect]
     Active Substance: LETROZOLE
     Indication: ADJUVANT THERAPY
  2. FEMARA [Suspect]
     Active Substance: LETROZOLE
     Indication: OSTEOPOROSIS PROPHYLAXIS
     Dosage: 1 DF, QD (2.5 MG)
     Route: 048
     Dates: start: 20130813, end: 20180801
  3. PROLIA [Suspect]
     Active Substance: DENOSUMAB
     Indication: PRODUCT USED FOR UNKNOWN INDICATION
     Dosage: 60 MG (EVERY 6 MONTHS)
     Route: 058
     Dates: start: 20130813, end: 20180221

REACTIONS (3)
  - Rebound effect [Recovering/Resolving]
  - Bone density decreased [Recovering/Resolving]
  - Thoracic vertebral fracture [Not Recovered/Not Resolved]

NARRATIVE: CASE EVENT DATE: 2018
